FAERS Safety Report 8514546-8 (Version None)
Quarter: 2012Q3

REPORT INFORMATION
  Report Type: 
  Country: None (occurrence: None)
  Receive Date: 20120717
  Receipt Date: 20120405
  Transmission Date: 20120928
  Serious: No
  Sender: FDA-Public Use
  Company Number: US-MYLANLABS-2012S1007457

PATIENT
  Age: 58 Year
  Sex: Female
  Weight: 73.94 kg

DRUGS (6)
  1. IBANDRONATE SODIUM [Suspect]
     Indication: OSTEOPOROSIS
     Route: 048
     Dates: start: 20120330
  2. SYNTHROID [Concomitant]
  3. BYSTOLIC [Concomitant]
  4. DIOVAN [Concomitant]
  5. CRESTOR [Concomitant]
  6. VITAMIN D [Concomitant]

REACTIONS (4)
  - MYALGIA [None]
  - HEADACHE [None]
  - OROPHARYNGEAL PAIN [None]
  - INFLUENZA LIKE ILLNESS [None]
